FAERS Safety Report 18212346 (Version 1)
Quarter: 2020Q3

REPORT INFORMATION
  Report Type: Spontaneous
  Country: RO (occurrence: RO)
  Receive Date: 20200831
  Receipt Date: 20200831
  Transmission Date: 20201103
  Serious: Yes (Life-Threatening, Hospitalization)
  Sender: FDA-Public Use
  Company Number: NVSC2020RO238563

PATIENT
  Age: 86 Year
  Sex: Female

DRUGS (3)
  1. IMATINIB. [Suspect]
     Active Substance: IMATINIB MESYLATE
     Dosage: 100 MG, QD (STRENGTH: 100 MG)
     Route: 065
  2. DASATINIB. [Concomitant]
     Active Substance: DASATINIB
     Indication: PRODUCT USED FOR UNKNOWN INDICATION
     Dosage: 50 MG, QD
     Route: 065
  3. IMATINIB. [Suspect]
     Active Substance: IMATINIB MESYLATE
     Indication: CHRONIC MYELOID LEUKAEMIA
     Dosage: 400 MG, QD
     Route: 065

REACTIONS (2)
  - Pyrexia [Unknown]
  - Anuria [Unknown]
